FAERS Safety Report 7488162-3 (Version None)
Quarter: 2011Q2

REPORT INFORMATION
  Report Type: 
  Country: None (occurrence: None)
  Receive Date: 20110518
  Receipt Date: 20110510
  Transmission Date: 20111010
  Serious: Yes (Hospitalization)
  Sender: FDA-Public Use
  Company Number: US-B.I. PHARMACEUTICALS,INC./RIDGEFIELD-2011-BP-11171BP

PATIENT
  Age: 80 Year
  Sex: Male
  Weight: 84.09 kg

DRUGS (3)
  1. ASPIRIN [Concomitant]
  2. PLAVIX [Concomitant]
  3. PRADAXA [Suspect]
     Indication: ATRIAL FIBRILLATION
     Dosage: 300 MG
     Route: 048
     Dates: start: 20110301, end: 20110401

REACTIONS (5)
  - CARDIAC DISORDER [None]
  - ABDOMINAL PAIN LOWER [None]
  - RETROPERITONEAL HAEMORRHAGE [None]
  - ATRIAL FIBRILLATION [None]
  - RENAL FAILURE ACUTE [None]
